FAERS Safety Report 8253250-0 (Version None)
Quarter: 2012Q2

REPORT INFORMATION
  Report Type: 
  Country: None (occurrence: None)
  Receive Date: 20120402
  Receipt Date: 20120308
  Transmission Date: 20120825
  Serious: No
  Sender: FDA-Public Use
  Company Number: US-AMGEN-USASP2012015291

PATIENT
  Age: 60 Year
  Sex: Female

DRUGS (1)
  1. ENBREL [Suspect]
     Indication: PSORIATIC ARTHROPATHY
     Dosage: 50 MG, AS NEEDED
     Route: 058
     Dates: start: 20050401

REACTIONS (5)
  - RHINORRHOEA [None]
  - PRURITUS [None]
  - FATIGUE [None]
  - ASTHENIA [None]
  - IMPAIRED HEALING [None]
